FAERS Safety Report 6671449-1 (Version None)
Quarter: 2010Q2

REPORT INFORMATION
  Report Type: 
  Country: None (occurrence: None)
  Receive Date: 20100406
  Receipt Date: 20100406
  Transmission Date: 20101027
  Serious: No
  Sender: FDA-Public Use
  Company Number: None

PATIENT
  Age: 68 Year
  Sex: Female
  Weight: 73.0291 kg

DRUGS (2)
  1. SOMA [Suspect]
     Indication: SLEEP DISORDER
     Dosage: 125 MG. (1/2) 1 EYE. 125 MG. (1/2) 2ND. EYE.
     Dates: start: 20090319
  2. SOMA [Suspect]
     Indication: SLEEP DISORDER
     Dosage: 125 MG. (1/2) 1 EYE. 125 MG. (1/2) 2ND. EYE.
     Dates: start: 20090320

REACTIONS (2)
  - GAIT DISTURBANCE [None]
  - MUSCULOSKELETAL STIFFNESS [None]
